FAERS Safety Report 9000264 (Version 1)
Quarter: 2013Q1

REPORT INFORMATION
  Report Type: Spontaneous
  Country: US (occurrence: US)
  Receive Date: 20130105
  Receipt Date: 20130105
  Transmission Date: 20140127
  Serious: No
  Sender: FDA-Public Use
  Company Number: US-ASTRAZENECA-2012SE94025

PATIENT
  Age: 56 Year
  Sex: Female
  Weight: 81.6 kg

DRUGS (12)
  1. RHINOCORT AQUA [Suspect]
     Route: 045
  2. VESICARE [Concomitant]
     Indication: BLADDER DISORDER
  3. METFORMIN [Concomitant]
     Indication: DIABETES MELLITUS
  4. HYDROCHLOROTHYZIDE [Concomitant]
     Indication: BLOOD PRESSURE ABNORMAL
  5. AMITRIPTYLINE [Concomitant]
     Indication: SLEEP DISORDER
  6. LORAZEPAM [Concomitant]
     Indication: NERVE INJURY
  7. FLOVENT [Concomitant]
     Indication: ASTHMA
  8. ALBUTERAL [Concomitant]
     Indication: ASTHMA
  9. COZARR [Concomitant]
     Indication: BLOOD PRESSURE ABNORMAL
  10. LIPITOR [Concomitant]
     Indication: BLOOD CHOLESTEROL ABNORMAL
  11. ACIPHEX [Concomitant]
     Indication: GASTROOESOPHAGEAL REFLUX DISEASE
  12. TERBINALINE [Concomitant]
     Indication: TINEA PEDIS

REACTIONS (1)
  - Blood pressure increased [Unknown]
